FAERS Safety Report 13794379 (Version 2)
Quarter: 2017Q3

REPORT INFORMATION
  Report Type: Spontaneous
  Country: US (occurrence: US)
  Receive Date: 20170726
  Receipt Date: 20170801
  Transmission Date: 20171127
  Serious: No
  Sender: FDA-Public Use
  Company Number: US-PFIZER INC-2017322045

PATIENT
  Age: 34 Year
  Sex: Female
  Weight: 55.34 kg

DRUGS (4)
  1. ONE-A-DAY [Suspect]
     Active Substance: VITAMINS
     Indication: ROUTINE HEALTH MAINTENANCE
     Dosage: ONE DAILY
  2. PROBIOTICS [Suspect]
     Active Substance: PROBIOTICS NOS
     Dosage: UNK
  3. PROTONIX [Suspect]
     Active Substance: PANTOPRAZOLE SODIUM
     Indication: BARRETT^S OESOPHAGUS
  4. PROTONIX [Suspect]
     Active Substance: PANTOPRAZOLE SODIUM
     Indication: GASTROOESOPHAGEAL REFLUX DISEASE
     Dosage: 20MG TABLET EVERY OTHER DAY

REACTIONS (2)
  - Product use issue [Unknown]
  - Food allergy [Not Recovered/Not Resolved]

NARRATIVE: CASE EVENT DATE: 20170720
